FAERS Safety Report 4909929-9 (Version None)
Quarter: 2006Q1

REPORT INFORMATION
  Report Type: 
  Country: None (occurrence: None)
  Receive Date: 20060208
  Receipt Date: 20060123
  Transmission Date: 20060701
  Serious: Yes (Other)
  Sender: FDA-Public Use
  Company Number: 2006EU000198

PATIENT
  Sex: 0

DRUGS (3)
  1. PROGRAF [Suspect]
     Indication: PANCREAS ISLET CELL TRANSPLANT
     Dosage: D, IV NOS
     Route: 042
  2. SIROLIMUS (SIROLIMUS) [Suspect]
     Indication: PANCREAS ISLET CELL TRANSPLANT
     Dosage: D, IV NOS
     Route: 042
  3. DACLIZUMAB (DACLIZUMAB) [Suspect]
     Indication: PANCREAS ISLET CELL TRANSPLANT
     Dosage: D, IV NOS
     Route: 042

REACTIONS (8)
  - CARDIOMYOPATHY [None]
  - DILATATION VENTRICULAR [None]
  - FATIGUE [None]
  - MYOCARDIAL FIBROSIS [None]
  - MYOCARDITIS [None]
  - PHARYNGITIS [None]
  - PYREXIA [None]
  - RHINITIS [None]
